FAERS Safety Report 9555261 (Version 1)
Quarter: 2013Q3

REPORT INFORMATION
  Report Type: Spontaneous
  Country: US (occurrence: None)
  Receive Date: 20130925
  Receipt Date: 20130925
  Transmission Date: 20140515
  Serious: No
  Sender: FDA-Public Use
  Company Number: None

PATIENT
  Age: 51 Year
  Sex: Female

DRUGS (12)
  1. TECFIDERA [Suspect]
     Indication: MULTIPLE SCLEROSIS
     Route: 048
  2. FLUOXETINE [Concomitant]
  3. SIMVASTATIN [Concomitant]
  4. LISINOPRIL [Concomitant]
  5. SINGULAIR [Concomitant]
  6. MUTIVITAMIN [Concomitant]
  7. OMEPRAZOLE [Concomitant]
  8. VICODEN [Concomitant]
  9. XOPENEX [Concomitant]
  10. VITAMIN B12 [Concomitant]
  11. TIZANIDINE [Concomitant]
  12. FLOVENT [Concomitant]

REACTIONS (6)
  - Nausea [None]
  - Vomiting [None]
  - Muscle spasms [None]
  - Arthralgia [None]
  - Asthenia [None]
  - Bronchial secretion retention [None]
